FAERS Safety Report 9472501 (Version 1)
Quarter: 2013Q3

REPORT INFORMATION
  Report Type: Spontaneous
  Country: US (occurrence: None)
  Receive Date: 20130821
  Receipt Date: 20130821
  Transmission Date: 20140515
  Serious: Yes (Hospitalization)
  Sender: FDA-Public Use
  Company Number: None

PATIENT
  Age: 75 Year
  Sex: Male
  Weight: 69.4 kg

DRUGS (10)
  1. XARELTO 20 MG JANSSEN [Suspect]
     Indication: ATRIAL FIBRILLATION
     Dosage: 1 PILL
     Route: 048
     Dates: start: 20130501, end: 20130820
  2. ONDANSETRON [Concomitant]
  3. ACETAMINOPHEN [Concomitant]
  4. AMLODIPINE [Concomitant]
  5. MAGNESIUM OXIDE [Concomitant]
  6. DILTIAZEM [Concomitant]
  7. DIGOXIN [Concomitant]
  8. VITAMIN C [Concomitant]
  9. DIATXZN [Concomitant]
  10. LACTOBACILLUS-PECTIN [Concomitant]

REACTIONS (3)
  - Haemoglobin decreased [None]
  - Haematocrit decreased [None]
  - Gastrointestinal haemorrhage [None]
